FAERS Safety Report 12846234 (Version 1)
Quarter: 2016Q4

REPORT INFORMATION
  Report Type: Spontaneous
  Country: US (occurrence: US)
  Receive Date: 20161014
  Receipt Date: 20161014
  Transmission Date: 20170207
  Serious: Yes (Other)
  Sender: FDA-Public Use
  Company Number: US-ROCHE-1794986

PATIENT
  Sex: Female

DRUGS (2)
  1. AVASTIN [Suspect]
     Active Substance: BEVACIZUMAB
     Indication: MACULAR OEDEMA
  2. AVASTIN [Suspect]
     Active Substance: BEVACIZUMAB
     Indication: RETINAL VEIN OCCLUSION
     Dosage: 1.25MG/0.05ML
     Route: 065
     Dates: start: 20130528, end: 20160510

REACTIONS (4)
  - Product quality issue [Unknown]
  - Vitreous disorder [Recovered/Resolved with Sequelae]
  - Vitreous floaters [Unknown]
  - Expired product administered [Unknown]
